FAERS Safety Report 9875550 (Version 2)
Quarter: 2014Q1

REPORT INFORMATION
  Report Type: Other
  Country: US (occurrence: US)
  Receive Date: 20140206
  Receipt Date: 20140206
  Transmission Date: 20141002
  Serious: No
  Sender: FDA-Public Use
  Company Number: US-ACORDA-ACO_35965_2013

PATIENT
  Age: 48 Year
  Sex: Female
  Weight: 62.13 kg

DRUGS (8)
  1. AMPYRA [Suspect]
     Indication: GAIT DISTURBANCE
     Dosage: 10 MG, Q 12 HRS
     Route: 048
     Dates: start: 2013
  2. GABAPENTIN [Concomitant]
     Indication: RESTLESS LEGS SYNDROME
     Dosage: 100 MG, TID
     Route: 048
  3. BACLOFEN [Concomitant]
     Indication: MUSCLE SPASTICITY
     Dosage: 10 MG, TID
     Route: 048
  4. MODAFINIL [Concomitant]
     Indication: FATIGUE
     Dosage: 100 MG, QD. MORNING PRN
     Route: 048
  5. ANASTROZOLE [Concomitant]
     Indication: BREAST CANCER
     Dosage: 1 TAB, QD FOR 5 YEARS
     Route: 048
     Dates: start: 2009
  6. FLUOXETINE [Concomitant]
     Indication: MAJOR DEPRESSION
     Dosage: 20 MG, QD
     Route: 048
  7. TRAZODONE [Concomitant]
     Indication: MAJOR DEPRESSION
     Dosage: 100 MG, QD AT HS
     Route: 048
     Dates: start: 2013
  8. MOTRIN [Concomitant]
     Dosage: UNK

REACTIONS (1)
  - Drug effect decreased [Not Recovered/Not Resolved]
